FAERS Safety Report 9466673 (Version 1)
Quarter: 2013Q3

REPORT INFORMATION
  Report Type: Spontaneous
  Country: US (occurrence: US)
  Receive Date: 20130820
  Receipt Date: 20130820
  Transmission Date: 20140515
  Serious: No
  Sender: FDA-Public Use
  Company Number: US-BAYER-2013-098790

PATIENT
  Sex: Female

DRUGS (1)
  1. OCELLA [Suspect]
     Dosage: UNK
     Route: 048
     Dates: start: 2013

REACTIONS (3)
  - Metrorrhagia [None]
  - Inappropriate schedule of drug administration [None]
  - Medication error [None]
